FAERS Safety Report 18954072 (Version 1)
Quarter: 2021Q1

REPORT INFORMATION
  Report Type: Spontaneous
  Country: CN (occurrence: CN)
  Receive Date: 20210301
  Receipt Date: 20210301
  Transmission Date: 20210420
  Serious: Yes (Other)
  Sender: FDA-Public Use
  Company Number: CN-ROCHE-2776508

PATIENT
  Age: 44 Year
  Sex: Female

DRUGS (28)
  1. HERCEPTIN [Suspect]
     Active Substance: TRASTUZUMAB
     Indication: ADENOCARCINOMA GASTRIC
     Route: 065
  2. HERCEPTIN [Suspect]
     Active Substance: TRASTUZUMAB
     Route: 065
     Dates: start: 20180601
  3. CAPECITABINE. [Concomitant]
     Active Substance: CAPECITABINE
     Dosage: DF=TABLET
     Dates: start: 20190528
  4. CAPECITABINE. [Concomitant]
     Active Substance: CAPECITABINE
     Dosage: DF=TABLET
     Dates: start: 20180601
  5. CAPECITABINE. [Concomitant]
     Active Substance: CAPECITABINE
     Dosage: DF=TABLET
     Dates: start: 20180622
  6. CAPECITABINE. [Concomitant]
     Active Substance: CAPECITABINE
     Dosage: DF=TABLET
     Dates: start: 20191209
  7. HERCEPTIN [Suspect]
     Active Substance: TRASTUZUMAB
     Route: 065
     Dates: start: 20180622
  8. HERCEPTIN [Suspect]
     Active Substance: TRASTUZUMAB
     Route: 065
  9. HERCEPTIN [Suspect]
     Active Substance: TRASTUZUMAB
     Route: 065
     Dates: start: 20200122
  10. HERCEPTIN [Suspect]
     Active Substance: TRASTUZUMAB
     Route: 065
  11. CAPECITABINE. [Concomitant]
     Active Substance: CAPECITABINE
     Indication: ADENOCARCINOMA GASTRIC
     Route: 048
  12. CAPECITABINE. [Concomitant]
     Active Substance: CAPECITABINE
     Dosage: DF=TABLET
  13. TEGAFUR GIMERACIL AND OTERACIL POTASSIUM [Concomitant]
     Active Substance: GIMERACIL\OTERACIL\TEGAFUR
     Dosage: DF=CAPSULE
     Dates: start: 20180510
  14. OXALIPLATIN. [Concomitant]
     Active Substance: OXALIPLATIN
     Indication: ADENOCARCINOMA GASTRIC
     Route: 041
  15. CAPECITABINE. [Concomitant]
     Active Substance: CAPECITABINE
     Dosage: DF=TABLET
  16. PACLITAXEL. [Concomitant]
     Active Substance: PACLITAXEL
     Indication: ADENOCARCINOMA GASTRIC
  17. OXALIPLATIN. [Concomitant]
     Active Substance: OXALIPLATIN
     Dates: start: 20180601
  18. TEGAFUR GIMERACIL AND OTERACIL POTASSIUM [Concomitant]
     Active Substance: GIMERACIL\OTERACIL\TEGAFUR
     Indication: ADENOCARCINOMA GASTRIC
     Dosage: DF=CAPSULE
  19. EPIRUBICIN [Concomitant]
     Active Substance: EPIRUBICIN
     Indication: ADENOCARCINOMA GASTRIC
     Route: 041
  20. OXALIPLATIN. [Concomitant]
     Active Substance: OXALIPLATIN
     Dates: start: 20190528
  21. CAPECITABINE. [Concomitant]
     Active Substance: CAPECITABINE
     Dosage: DF=TABLET
  22. HERCEPTIN [Suspect]
     Active Substance: TRASTUZUMAB
     Route: 065
     Dates: start: 20190528
  23. HERCEPTIN [Suspect]
     Active Substance: TRASTUZUMAB
     Route: 065
  24. HERCEPTIN [Suspect]
     Active Substance: TRASTUZUMAB
     Dosage: 3 CYCLES
     Route: 065
     Dates: start: 20191209
  25. HERCEPTIN [Suspect]
     Active Substance: TRASTUZUMAB
     Indication: ADENOCARCINOMA GASTRIC
     Dosage: 3 CYCLES
     Route: 042
     Dates: start: 20191209
  26. OXALIPLATIN. [Concomitant]
     Active Substance: OXALIPLATIN
     Route: 041
  27. OXALIPLATIN. [Concomitant]
     Active Substance: OXALIPLATIN
     Dates: start: 20180510
  28. CAPECITABINE. [Concomitant]
     Active Substance: CAPECITABINE
     Dates: start: 20200122

REACTIONS (2)
  - Abdominal pain [Unknown]
  - Intestinal obstruction [Unknown]
